FAERS Safety Report 8126014-6 (Version None)
Quarter: 2012Q1

REPORT INFORMATION
  Report Type: 
  Country: None (occurrence: None)
  Receive Date: 20120209
  Receipt Date: 20120206
  Transmission Date: 20120608
  Serious: Yes (Hospitalization)
  Sender: FDA-Public Use
  Company Number: PHHO2012NL002262

PATIENT
  Age: 48 Year
  Sex: Female

DRUGS (8)
  1. ONDANSETRON [Concomitant]
     Indication: PROPHYLAXIS
  2. CYCLOPHOSPHAMIDE [Suspect]
     Indication: BREAST CANCER
     Dosage: 1050 MG, UNK
     Route: 042
     Dates: start: 20120106
  3. ADRIAMYCIN PFS [Suspect]
     Indication: BREAST CANCER
     Dosage: 105 MG, UNK
     Route: 042
     Dates: start: 20120106
  4. TAXOTERE [Suspect]
     Indication: BREAST CANCER
     Dosage: 158 MG, UNK
     Route: 042
     Dates: start: 20120106
  5. DEXAMETHASONE [Suspect]
     Indication: PROPHYLAXIS
  6. GRANISETRON [Concomitant]
     Indication: PROPHYLAXIS
  7. NO TREATMENT RECEIVED [Suspect]
     Indication: BREAST CANCER
     Dosage: NO TREATMENT
  8. NEULASTA [Concomitant]
     Indication: PROPHYLAXIS

REACTIONS (1)
  - DYSPNOEA [None]
